FAERS Safety Report 6961496-4 (Version None)
Quarter: 2010Q3

REPORT INFORMATION
  Report Type: 
  Country: None (occurrence: None)
  Receive Date: 20100901
  Receipt Date: 20100825
  Transmission Date: 20110219
  Serious: Yes (Hospitalization, Other)
  Sender: FDA-Public Use
  Company Number: US-ABBOTT-10P-163-0666058-00

PATIENT
  Sex: Female
  Weight: 68.1 kg

DRUGS (4)
  1. HUMIRA [Suspect]
     Indication: CROHN'S DISEASE
     Route: 058
     Dates: start: 20090701, end: 20100101
  2. APRISO [Concomitant]
     Indication: CROHN'S DISEASE
     Dates: start: 20100101
  3. BIRTH CONTROL [Concomitant]
     Indication: PRODUCT USED FOR UNKNOWN INDICATION
  4. OTC ALLERGY MEDICATION [Concomitant]
     Indication: HYPERSENSITIVITY

REACTIONS (6)
  - ABDOMINAL PAIN [None]
  - ABSCESS [None]
  - CROHN'S DISEASE [None]
  - FISTULA [None]
  - GASTROINTESTINAL INFLAMMATION [None]
  - INFECTION [None]
